FAERS Safety Report 8195686-2 (Version None)
Quarter: 2012Q1

REPORT INFORMATION
  Report Type: 
  Country: None (occurrence: None)
  Receive Date: 20120308
  Receipt Date: 20120305
  Transmission Date: 20120608
  Serious: Yes (Other)
  Sender: FDA-Public Use
  Company Number: US-PFIZER INC-2012058945

PATIENT
  Sex: Female
  Weight: 73 kg

DRUGS (1)
  1. EFFEXOR [Suspect]
     Indication: DEPRESSION
     Dosage: 150 MG, 1X/DAY
     Dates: start: 20120201, end: 20120229

REACTIONS (15)
  - MOVEMENT DISORDER [None]
  - VERTIGO [None]
  - WITHDRAWAL SYNDROME [None]
  - EATING DISORDER [None]
  - HALLUCINATION [None]
  - INFLUENZA [None]
  - VOMITING [None]
  - DEPRESSED MOOD [None]
  - DYSSTASIA [None]
  - HYPOKINESIA [None]
  - BLOOD PRESSURE DECREASED [None]
  - WEIGHT DECREASED [None]
  - DIZZINESS [None]
  - CRYING [None]
  - MALAISE [None]
